FAERS Safety Report 12992646 (Version 6)
Quarter: 2020Q3

REPORT INFORMATION
  Report Type: Report from Study
  Country: CN (occurrence: CN)
  Receive Date: 20161202
  Receipt Date: 20200803
  Transmission Date: 20201102
  Serious: Yes (Hospitalization)
  Sender: FDA-Public Use
  Company Number: CN-ROCHE-1858948

PATIENT
  Age: 59 Year
  Sex: Male
  Weight: 55 kg

DRUGS (38)
  1. ATEZOLIZUMAB. [Suspect]
     Active Substance: ATEZOLIZUMAB
     Indication: NEOPLASM
     Dosage: DOSE OF LAST ATEZOLIZUMAB ADMINISTERED: 1200 MG?DATE OF MOST RECENT DOSE: 11/NOV/2016
     Route: 042
     Dates: start: 20161111
  2. CREATINE PHOSPHATE SODIUM [Concomitant]
     Active Substance: CREATINE
     Dates: start: 20161120, end: 20161121
  3. MAGNESIUM SULFATE. [Concomitant]
     Active Substance: MAGNESIUM SULFATE
     Dates: start: 20161122, end: 20161129
  4. MEZLOCILLIN SODIUM;SULBACTAM SODIUM [Concomitant]
     Dates: start: 20161122, end: 20161129
  5. LIDOCAINE HYDROCHLORIDE. [Concomitant]
     Active Substance: LIDOCAINE HYDROCHLORIDE
     Indication: ANAESTHESIA
     Dates: start: 20161125, end: 20161125
  6. SODIUM CHLORIDE. [Concomitant]
     Active Substance: SODIUM CHLORIDE
     Dates: start: 20161207, end: 20161210
  7. KANGLAITE [Concomitant]
     Dates: start: 20161122, end: 20161129
  8. INSULIN [Concomitant]
     Active Substance: INSULIN NOS
     Dosage: ANIMAL INSULIN INTRAVENOUS NUTRITION
     Route: 042
     Dates: start: 20161120, end: 20161120
  9. COMPOSITE POTASSIUM HYDROGEN PHOSPHATE [Concomitant]
     Dates: start: 20161121, end: 20161122
  10. GLUCOSE [Concomitant]
     Active Substance: DEXTROSE
  11. WATER?SOLUBLE VITAMIN [Concomitant]
     Active Substance: VITAMINS
     Indication: NUTRITIONAL SUPPLEMENTATION
     Dates: start: 20161120, end: 20161122
  12. AMBROXOL [Concomitant]
     Active Substance: AMBROXOL
     Indication: PRODUCTIVE COUGH
     Dates: start: 20161120, end: 20161129
  13. MANNITOL. [Concomitant]
     Active Substance: MANNITOL
     Dates: start: 20161120, end: 20161120
  14. ETOMIDATE. [Concomitant]
     Active Substance: ETOMIDATE
     Dosage: FAT EMULSION
     Dates: start: 20161120, end: 20161120
  15. SODIUM CHLORIDE. [Concomitant]
     Active Substance: SODIUM CHLORIDE
     Dates: start: 20161120, end: 20161121
  16. ESOMEPRAZOLE SODIUM. [Concomitant]
     Active Substance: ESOMEPRAZOLE SODIUM
     Dates: start: 20161120, end: 20161121
  17. FENTANYL. [Concomitant]
     Active Substance: FENTANYL
     Dates: start: 20161125, end: 20161125
  18. STERILE WATER [Concomitant]
     Active Substance: WATER
     Dates: start: 20161120, end: 20161121
  19. TERBUTALINE [Concomitant]
     Active Substance: TERBUTALINE
     Indication: COUGH
     Dates: start: 20161121, end: 20161129
  20. CODEINE [Concomitant]
     Active Substance: CODEINE
     Indication: ANALGESIC THERAPY
     Dates: start: 20161125, end: 20161125
  21. AZTREONAM. [Concomitant]
     Active Substance: AZTREONAM
     Dates: start: 20161207, end: 20161210
  22. HAEMOCOAGULASE [Concomitant]
     Indication: HAEMOSTASIS
     Dates: start: 20161125, end: 20161125
  23. SODIUM CHLORIDE. [Concomitant]
     Active Substance: SODIUM CHLORIDE
     Indication: BRONCHOSCOPY
     Dosage: PHYSIOLOGICAL SOLUTION
     Dates: start: 20161120, end: 20161121
  24. INVERT SUGAR [Concomitant]
     Active Substance: INVERT SUGAR
     Dates: start: 20161120, end: 20161129
  25. DEXMEDETOMIDINE. [Concomitant]
     Active Substance: DEXMEDETOMIDINE
     Dates: start: 20161120, end: 20161121
  26. MIDAZOLAM. [Concomitant]
     Active Substance: MIDAZOLAM
     Dates: start: 20161125, end: 20161125
  27. SODIUM CHLORIDE. [Concomitant]
     Active Substance: SODIUM CHLORIDE
     Indication: BLADDER IRRIGATION
     Dates: start: 20161125, end: 20161125
  28. COENZYME COMPLEX [Concomitant]
     Active Substance: UNSPECIFIED INGREDIENT
     Dates: start: 20161120, end: 20161121
  29. CEFOSELIS [Concomitant]
     Active Substance: CEFOSELIS
     Dates: start: 20161120, end: 20161121
  30. FAT EMULSION NOS [Concomitant]
     Active Substance: EGG PHOSPHOLIPIDS\SAFFLOWER OIL\SOYBEAN OIL
     Dates: start: 20161208, end: 20161210
  31. BROMHEXINE [Concomitant]
     Active Substance: BROMHEXINE
     Indication: PRODUCTIVE COUGH
     Dates: start: 20161207, end: 20161210
  32. HUMAN ALBUMIN [Concomitant]
     Active Substance: ALBUMIN HUMAN
     Dates: start: 20161208, end: 20161209
  33. PROPOFOL. [Concomitant]
     Active Substance: PROPOFOL
     Dosage: MEDIUM/LENGTH CHAIN FAT EMULSION
     Dates: start: 20161120, end: 20161120
  34. L?ALANYL?L?GLUTAMINE [Concomitant]
     Dates: start: 20161120, end: 20161120
  35. FAT EMULSION NOS [Concomitant]
     Active Substance: EGG PHOSPHOLIPIDS\SAFFLOWER OIL\SOYBEAN OIL
     Dates: start: 20161120, end: 20161122
  36. FAT EMULSION NOS [Concomitant]
     Active Substance: EGG PHOSPHOLIPIDS\SAFFLOWER OIL\SOYBEAN OIL
     Dates: start: 20161121, end: 20161122
  37. TERBUTALINE [Concomitant]
     Active Substance: TERBUTALINE
     Indication: ASTHMA
  38. KCL [Concomitant]
     Active Substance: POTASSIUM CHLORIDE
     Dates: start: 20161120, end: 20161120

REACTIONS (2)
  - Laryngeal oedema [Recovered/Resolved]
  - Shock [Recovered/Resolved]

NARRATIVE: CASE EVENT DATE: 20161119
